FAERS Safety Report 16587555 (Version 1)
Quarter: 2019Q3

REPORT INFORMATION
  Report Type: Spontaneous
  Country: FR (occurrence: FR)
  Receive Date: 20190717
  Receipt Date: 20190717
  Transmission Date: 20191004
  Serious: Yes (Other)
  Sender: FDA-Public Use
  Company Number: FR-BAUSCH-BL-2019-020111

PATIENT
  Age: 7 Year
  Sex: Male

DRUGS (1)
  1. XENAZINE [Suspect]
     Active Substance: TETRABENAZINE
     Indication: DYSTONIA
     Dosage: TABLET BREACKABLE
     Route: 048
     Dates: start: 20180606

REACTIONS (2)
  - Erythema [Recovered/Resolved]
  - Target skin lesion [Recovered/Resolved]

NARRATIVE: CASE EVENT DATE: 20180608
